FAERS Safety Report 19482150 (Version 1)
Quarter: 2021Q2

REPORT INFORMATION
  Report Type: Spontaneous
  Country: US (occurrence: US)
  Receive Date: 20210630
  Receipt Date: 20210630
  Transmission Date: 20210717
  Serious: Yes (Death)
  Sender: FDA-Public Use
  Company Number: None

PATIENT
  Age: 65 Year
  Sex: Male
  Weight: 89.3 kg

DRUGS (16)
  1. ASPIRIN 81 [Concomitant]
     Active Substance: ASPIRIN
  2. GLIPIZIDE. [Concomitant]
     Active Substance: GLIPIZIDE
  3. LANTUS [Concomitant]
     Active Substance: INSULIN GLARGINE
  4. LYRICA [Concomitant]
     Active Substance: PREGABALIN
  5. REVATIO [Concomitant]
     Active Substance: SILDENAFIL CITRATE
  6. JANUVIA [Concomitant]
     Active Substance: SITAGLIPTIN PHOSPHATE
  7. NOVOLOG [Concomitant]
     Active Substance: INSULIN ASPART
  8. SUCRALFATE. [Concomitant]
     Active Substance: SUCRALFATE
  9. ATENOLOL. [Concomitant]
     Active Substance: ATENOLOL
  10. ESOMEPRAZOLE MAGNESIUM. [Concomitant]
     Active Substance: ESOMEPRAZOLE MAGNESIUM
  11. INVOKAMET XR [Concomitant]
     Active Substance: CANAGLIFLOZIN\METFORMIN HYDROCHLORIDE
  12. ONDANSETRON HCL [Concomitant]
     Active Substance: ONDANSETRON HYDROCHLORIDE
  13. OXYCODONE?ACETAMINOPHEN [Concomitant]
     Active Substance: ACETAMINOPHEN\OXYCODONE HYDROCHLORIDE
  14. TALZENNA [Suspect]
     Active Substance: TALAZOPARIB TOSYLATE
     Indication: CHOLANGIOCARCINOMA
     Route: 048
     Dates: start: 20210527, end: 20210626
  15. PROCHLORPERAZINE MALEATE. [Concomitant]
     Active Substance: PROCHLORPERAZINE MALEATE
  16. LISINOPRIL. [Concomitant]
     Active Substance: LISINOPRIL

REACTIONS (1)
  - Death [None]

NARRATIVE: CASE EVENT DATE: 20210626
